FAERS Safety Report 9305164 (Version 1)
Quarter: 2013Q2

REPORT INFORMATION
  Report Type: Spontaneous
  Country: EG (occurrence: None)
  Receive Date: 20130520
  Receipt Date: 20130520
  Transmission Date: 20140414
  Serious: Yes (Other)
  Sender: FDA-Public Use
  Company Number: SYM-2013-03858

PATIENT
  Sex: 0

DRUGS (6)
  1. FLUOROURACIL (FLUOROURACIL) (SOLUTION FOR INFUSION) (FLUOROURACIL) [Suspect]
     Indication: ADENOCARCINOMA PANCREAS
     Route: 040
  2. OXALIPLATIN (OXALIPLATIN) (SOLUTION FOR INFUSION) (OXALIPLATIN) [Suspect]
     Indication: ADENOCARCINOMA PANCREAS
     Dosage: 85 MG/M2, WEEKLY, INTRAVENOUS (NOT OTHERWISE SPECIFIED)
     Route: 042
  3. FOLINIC ACID (FOLINIC ACID)(FOLINIC ACID) [Suspect]
     Indication: ADENOCARCINOMA PANCREAS
     Route: 042
  4. DEXAMETHASONE (DEXAMETHASONE) (DEXAMETHASONE) [Concomitant]
  5. ONDANSETRON (ONDANSETRON) (ONDANSETRON) [Concomitant]
  6. GEMCITABINE (GEMCITABINE) (GEMCITABINE) [Concomitant]

REACTIONS (2)
  - Thrombosis [None]
  - Embolism [None]
